FAERS Safety Report 7714738-1 (Version None)
Quarter: 2011Q3

REPORT INFORMATION
  Report Type: 
  Country: None (occurrence: None)
  Receive Date: 20110829
  Receipt Date: 20110818
  Transmission Date: 20111222
  Serious: Yes (Other)
  Sender: FDA-Public Use
  Company Number: FR-BAYER-2011-075177

PATIENT
  Sex: Female

DRUGS (1)
  1. YAZ [Suspect]
     Dosage: UNK
     Dates: start: 20110531, end: 20110804

REACTIONS (6)
  - ABDOMINAL PAIN [None]
  - WEIGHT DECREASED [None]
  - DEPRESSION [None]
  - CHEST PAIN [None]
  - NAUSEA [None]
  - ANXIETY [None]
